FAERS Safety Report 24675779 (Version 1)
Quarter: 2024Q4

REPORT INFORMATION
  Report Type: Report from Study
  Country: US (occurrence: US)
  Receive Date: 20241128
  Receipt Date: 20241128
  Transmission Date: 20250115
  Serious: Yes (Other)
  Sender: ABBVIE
  Company Number: US-ABBVIE-6013951

PATIENT
  Age: 72 Year
  Sex: Female
  Weight: 46.719 kg

DRUGS (2)
  1. RESTASIS [Suspect]
     Active Substance: CYCLOSPORINE
     Indication: Dry eye
     Route: 047
     Dates: start: 2009
  2. RESTASIS [Suspect]
     Active Substance: CYCLOSPORINE
     Dosage: 1 DROP IN BOTH EYES
     Route: 047
     Dates: start: 2010

REACTIONS (3)
  - Breast cancer [Recovered/Resolved]
  - Pain [Recovered/Resolved]
  - Eye pain [Recovered/Resolved]

NARRATIVE: CASE EVENT DATE: 20221101
